FAERS Safety Report 10696734 (Version 2)
Quarter: 2015Q2

REPORT INFORMATION
  Report Type: Spontaneous
  Country: CH (occurrence: CH)
  Receive Date: 20150108
  Receipt Date: 20150625
  Transmission Date: 20150821
  Serious: Yes (Other)
  Sender: FDA-Public Use
  Company Number: CH-ROCHE-1515670

PATIENT
  Age: 67 Year
  Sex: Male

DRUGS (2)
  1. CELLCEPT [Suspect]
     Active Substance: MYCOPHENOLATE MOFETIL\MYCOPHENOLATE MOFETIL HYDROCHLORIDE
     Indication: PRODUCT USED FOR UNKNOWN INDICATION
     Route: 065
  2. RAPAMUNE [Suspect]
     Active Substance: SIROLIMUS
     Indication: IMMUNOSUPPRESSION
     Dosage: FURTHER TREATMENT WITH 1 MG AND 2 MG ONCE A DAY ALTERNATELY
     Route: 065
     Dates: start: 20110902, end: 20140701

REACTIONS (4)
  - Interstitial lung disease [Not Recovered/Not Resolved]
  - Carbon monoxide diffusing capacity decreased [Unknown]
  - Ventilation/perfusion scan abnormal [Unknown]
  - Pleural effusion [Unknown]

NARRATIVE: CASE EVENT DATE: 20140626
